FAERS Safety Report 26042073 (Version 1)
Quarter: 2025Q4

REPORT INFORMATION
  Report Type: Spontaneous
  Country: EU (occurrence: EU)
  Receive Date: 20251113
  Receipt Date: 20251113
  Transmission Date: 20260117
  Serious: Yes (Hospitalization, Other)
  Sender: ABBVIE
  Company Number: EU-ABBVIE-6537908

PATIENT
  Age: 43 Year
  Sex: Female

DRUGS (2)
  1. VENETOCLAX [Suspect]
     Active Substance: VENETOCLAX
     Indication: Acute myeloid leukaemia
     Route: 048
     Dates: start: 2025, end: 2025
  2. AZACITIDINE [Concomitant]
     Active Substance: AZACITIDINE
     Indication: Acute myeloid leukaemia
     Dates: start: 2025

REACTIONS (8)
  - Appendicitis [Unknown]
  - Haematotoxicity [Unknown]
  - Thrombocytopenia [Unknown]
  - Haematoma infection [Unknown]
  - Respiratory tract infection [Unknown]
  - Febrile neutropenia [Unknown]
  - Pancytopenia [Unknown]
  - Wound [Unknown]

NARRATIVE: CASE EVENT DATE: 20250101
